FAERS Safety Report 15255479 (Version 1)
Quarter: 2018Q3

REPORT INFORMATION
  Report Type: Spontaneous
  Country: US (occurrence: US)
  Receive Date: 20180717
  Receipt Date: 20180717
  Transmission Date: 20181010
  Serious: No
  Sender: FDA-Public Use
  Company Number: None

PATIENT
  Age: 55 Year
  Sex: Female
  Weight: 72.9 kg

DRUGS (17)
  1. PRAVASTATIN. [Concomitant]
     Active Substance: PRAVASTATIN
  2. AZATHIOPRINE. [Concomitant]
     Active Substance: AZATHIOPRINE
  3. GABAPENTIN. [Concomitant]
     Active Substance: GABAPENTIN
  4. OMEPRAZOLE. [Concomitant]
     Active Substance: OMEPRAZOLE
  5. POTASSIUM [Concomitant]
     Active Substance: POTASSIUM
  6. NOVOLOG [Concomitant]
     Active Substance: INSULIN ASPART
  7. BLOOD SUGAR SENSOR [Concomitant]
  8. VALSARTAN. [Suspect]
     Active Substance: VALSARTAN
     Indication: CARDIAC FAILURE
     Dosage: ?          QUANTITY:90 TABLET(S);?
     Route: 048
     Dates: start: 20170901, end: 20180717
  9. ASPIRIN. [Concomitant]
     Active Substance: ASPIRIN
  10. CLOPIDOGREL [Concomitant]
     Active Substance: CLOPIDOGREL BISULFATE
  11. FUROSEMIDE. [Concomitant]
     Active Substance: FUROSEMIDE
  12. LEVOTHYROXINE. [Concomitant]
     Active Substance: LEVOTHYROXINE
  13. VALSARTAN. [Suspect]
     Active Substance: VALSARTAN
     Indication: BLOOD PRESSURE MEASUREMENT
     Dosage: ?          QUANTITY:90 TABLET(S);?
     Route: 048
     Dates: start: 20170901, end: 20180717
  14. INSULIN [Concomitant]
     Active Substance: INSULIN NOS
  15. INSULIN PUMP [Concomitant]
     Active Substance: INSULIN NOS
  16. LIDOCAINE. [Concomitant]
     Active Substance: LIDOCAINE
  17. METOPROLOL XL [Concomitant]
     Active Substance: METOPROLOL SUCCINATE

REACTIONS (3)
  - Somnolence [None]
  - Blister [None]
  - Pruritus [None]

NARRATIVE: CASE EVENT DATE: 20180712
